FAERS Safety Report 17797268 (Version 1)
Quarter: 2020Q2

REPORT INFORMATION
  Report Type: Spontaneous
  Country: US (occurrence: US)
  Receive Date: 20200517
  Receipt Date: 20200517
  Transmission Date: 20200714
  Serious: Yes (Other)
  Sender: FDA-Public Use
  Company Number: None

PATIENT
  Age: 72 Year
  Sex: Female
  Weight: 92 kg

DRUGS (5)
  1. REMDESIVIR. [Suspect]
     Active Substance: REMDESIVIR
     Indication: COVID-19 PNEUMONIA
     Route: 042
     Dates: start: 20200513, end: 20200516
  2. REMDESIVIR. [Suspect]
     Active Substance: REMDESIVIR
     Indication: RESPIRATORY FAILURE
     Route: 042
     Dates: start: 20200513, end: 20200516
  3. CONVALESCENT PLASMA FOR COVID-19 [Concomitant]
     Dates: start: 20200515, end: 20200516
  4. REMDESIVIR. [Suspect]
     Active Substance: REMDESIVIR
     Indication: COVID-19 PNEUMONIA
     Dosage: ?          OTHER FREQUENCY:ONCE;?
     Route: 040
     Dates: start: 20200512, end: 20200512
  5. REMDESIVIR. [Suspect]
     Active Substance: REMDESIVIR
     Indication: RESPIRATORY FAILURE
     Dosage: ?          OTHER FREQUENCY:ONCE;?
     Route: 040
     Dates: start: 20200512, end: 20200512

REACTIONS (6)
  - Hemiparesis [None]
  - Mental status changes [None]
  - Depressed level of consciousness [None]
  - Blood creatinine increased [None]
  - Renal ischaemia [None]
  - Coronary artery stenosis [None]

NARRATIVE: CASE EVENT DATE: 20200513
